FAERS Safety Report 8849610 (Version 1)
Quarter: 2012Q4

REPORT INFORMATION
  Report Type: 
  Country: US (occurrence: US)
  Receive Date: 20121019
  Receipt Date: 20121019
  Transmission Date: 20130627
  Serious: Yes (Other)
  Sender: FDA-Public Use
  Company Number: US-PFIZER INC-2009233422

PATIENT
  Age: 48 Year
  Sex: Female
  Weight: 56 kg

DRUGS (4)
  1. PREMARIN [Suspect]
     Indication: HORMONE REPLACEMENT THERAPY
     Dosage: 0.625 mg, UNK
     Route: 048
     Dates: start: 1990, end: 200011
  2. PROVERA [Suspect]
     Indication: HORMONE REPLACEMENT THERAPY
     Dosage: 10 mg, UNK
     Route: 048
     Dates: start: 1993, end: 1993
  3. MEDROXYPROGESTERONE ACETATE [Suspect]
     Indication: HORMONE REPLACEMENT THERAPY
     Dosage: 10 mg, UNK
     Route: 048
     Dates: start: 199902, end: 200003
  4. MEDROXYPROGESTERONE ACETATE [Suspect]
     Indication: HORMONE REPLACEMENT THERAPY
     Dosage: 10 mg, UNK
     Route: 048
     Dates: start: 19980923, end: 19990919

REACTIONS (1)
  - Breast cancer female [Unknown]
